FAERS Safety Report 14897781 (Version 2)
Quarter: 2018Q3

REPORT INFORMATION
  Report Type: Spontaneous
  Country: ES (occurrence: ES)
  Receive Date: 20180515
  Receipt Date: 20180912
  Transmission Date: 20181010
  Serious: Yes (Other)
  Sender: FDA-Public Use
  Company Number: ES-MYLANLABS-2018M1031377

PATIENT
  Age: 20 Year
  Sex: Female

DRUGS (1)
  1. ISOTRETINOIN. [Suspect]
     Active Substance: ISOTRETINOIN
     Indication: ROSACEA
     Dosage: 6000 MG, TOTAL
     Route: 048

REACTIONS (3)
  - Off label use [Unknown]
  - Corneal deposits [Recovered/Resolved]
  - Product use in unapproved indication [Unknown]
